FAERS Safety Report 7138666-8 (Version None)
Quarter: 2010Q4

REPORT INFORMATION
  Report Type: 
  Country: None (occurrence: None)
  Receive Date: 20101206
  Receipt Date: 20101125
  Transmission Date: 20110411
  Serious: Yes (Other)
  Sender: FDA-Public Use
  Company Number: AU-MERCK-1011USA03498

PATIENT
  Sex: Female

DRUGS (3)
  1. PROSCAR [Suspect]
     Indication: ALOPECIA
     Route: 065
  2. GLUCOSAMINE [Concomitant]
     Route: 065
  3. ROGAINE [Concomitant]
     Route: 065

REACTIONS (2)
  - ABORTION SPONTANEOUS [None]
  - DRUG EXPOSURE DURING PREGNANCY [None]
